FAERS Safety Report 4466084-X (Version None)
Quarter: 2004Q4

REPORT INFORMATION
  Report Type: 
  Country: None (occurrence: None)
  Receive Date: 20041005
  Receipt Date: 20040922
  Transmission Date: 20050328
  Serious: Yes (Other)
  Sender: FDA-Public Use
  Company Number: PHNU2004DE03298

PATIENT
  Age: 59 Year
  Sex: Male

DRUGS (2)
  1. GLEEVEC [Suspect]
     Dosage: UNKNOWN
     Route: 048
  2. GLEEVEC [Suspect]
     Dosage: 400 MG/DAY
     Route: 048

REACTIONS (2)
  - PAROTID GLAND ENLARGEMENT [None]
  - PAROTITIS [None]
